FAERS Safety Report 10908123 (Version 3)
Quarter: 2015Q2

REPORT INFORMATION
  Report Type: Spontaneous
  Country: US (occurrence: US)
  Receive Date: 20150312
  Receipt Date: 20150415
  Transmission Date: 20150821
  Serious: Yes (Other)
  Sender: FDA-Public Use
  Company Number: US-INCYTE CORPORATION-2015IN000412

PATIENT
  Age: 78 Year
  Sex: Male
  Weight: 87.53 kg

DRUGS (9)
  1. JAKAFI [Suspect]
     Active Substance: RUXOLITINIB
     Indication: POLYCYTHAEMIA VERA
     Dosage: 20 MG, BID
     Route: 048
     Dates: start: 20150202
  2. TOPROL XL [Concomitant]
     Active Substance: METOPROLOL SUCCINATE
  3. PRAVASTATIN [Concomitant]
     Active Substance: PRAVASTATIN\PRAVASTATIN SODIUM
  4. LISINOPRIL. [Concomitant]
     Active Substance: LISINOPRIL
  5. NIFEDIPINE. [Concomitant]
     Active Substance: NIFEDIPINE
  6. LASIX [Concomitant]
     Active Substance: FUROSEMIDE
  7. ASPIRIN. [Concomitant]
     Active Substance: ASPIRIN
  8. ALLOPURINOL. [Concomitant]
     Active Substance: ALLOPURINOL
  9. COUMADIN [Concomitant]
     Active Substance: WARFARIN SODIUM

REACTIONS (2)
  - Dry skin [Recovering/Resolving]
  - Skin lesion [Recovering/Resolving]

NARRATIVE: CASE EVENT DATE: 20150217
